FAERS Safety Report 5967943-9 (Version None)
Quarter: 2008Q4

REPORT INFORMATION
  Report Type: 
  Country: None (occurrence: None)
  Receive Date: 20081121
  Receipt Date: 20081121
  Transmission Date: 20090506
  Serious: Yes (Other)
  Sender: FDA-Public Use
  Company Number: None

PATIENT
  Age: 69 Year
  Sex: Male
  Weight: 90.7194 kg

DRUGS (6)
  1. BAYER ASPIRIN WITH HEART ADVANTAGE [Suspect]
     Indication: ISCHAEMIC HEART DISEASE PROPHYLAXIS
     Dosage: 1 DF, QD, ORAL
     Route: 048
     Dates: start: 20080901
  2. ATENOLOL [Concomitant]
  3. CITALOPRAM HYDROBROMIDE [Concomitant]
  4. LOVAZA [Concomitant]
  5. KIRKLAND ADULT 50 PLUS MUTURE MULTIVITAMIN [Concomitant]
  6. ASPIRIN [Concomitant]

REACTIONS (5)
  - CONTUSION [None]
  - DIZZINESS [None]
  - FALL [None]
  - LOSS OF CONSCIOUSNESS [None]
  - MUSCLE SPASMS [None]
